FAERS Safety Report 7287275-9 (Version None)
Quarter: 2011Q1

REPORT INFORMATION
  Report Type: 
  Country: None (occurrence: None)
  Receive Date: 20110211
  Receipt Date: 20110201
  Transmission Date: 20110831
  Serious: Yes (Life-Threatening, Hospitalization)
  Sender: FDA-Public Use
  Company Number: DE-AMGEN-DEUCT2010009360

PATIENT
  Age: 51 Year
  Sex: Female
  Weight: 92 kg

DRUGS (7)
  1. METEX                              /00113802/ [Suspect]
     Indication: RHEUMATOID ARTHRITIS
     Dosage: 20 MG, WEEKLY
     Route: 058
     Dates: start: 20090901, end: 20101101
  2. LISINOPRIL [Concomitant]
     Indication: HYPERTENSION
     Dosage: 5 MG, 1X/DAY
     Route: 048
     Dates: start: 19990501
  3. SALBUHEXAL                         /00139501/ [Concomitant]
     Indication: ASTHMA
     Dosage: 1 INHALATION, AS NEEDED
  4. ETANERCEPT [Suspect]
     Indication: RHEUMATOID ARTHRITIS
     Dosage: 50 MG, WEEKLY
     Route: 058
     Dates: start: 20101028, end: 20101120
  5. SERETIDE                           /01420901/ [Concomitant]
     Indication: ASTHMA
     Dosage: 1 INHALATION, 1X/DAY
     Dates: start: 19960601
  6. PANTOPRAZOLE [Concomitant]
     Indication: GASTROOESOPHAGEAL REFLUX DISEASE
     Dosage: 20 MG, QD
     Dates: start: 20090901
  7. PANTOPRAZOLE [Concomitant]
     Dosage: 20 MG, 1X/DAY
     Dates: start: 20090901

REACTIONS (3)
  - SEPSIS [None]
  - DIARRHOEA [None]
  - ALVEOLITIS [None]
